FAERS Safety Report 5052750-4 (Version None)
Quarter: 2006Q3

REPORT INFORMATION
  Report Type: 
  Country: None (occurrence: None)
  Receive Date: 20060717
  Receipt Date: 20060530
  Transmission Date: 20061208
  Serious: Yes (Hospitalization)
  Sender: FDA-Public Use
  Company Number: FR-ROCHE-450157

PATIENT
  Age: 43 Year
  Sex: Male
  Weight: 90 kg

DRUGS (4)
  1. LARIAM [Suspect]
     Indication: DRUG USE FOR UNKNOWN INDICATION
     Dosage: REPORTED AS 250 MG AS TOTAL.
     Route: 048
     Dates: start: 20060403, end: 20060403
  2. MEDIATOR 150 [Suspect]
     Indication: OVERWEIGHT
     Route: 048
     Dates: start: 20040415, end: 20060410
  3. HAVRIX [Concomitant]
     Dosage: FORM: INJECTABLE SOLUTION.
     Route: 030
     Dates: start: 20060403, end: 20060403
  4. RABIPUR [Concomitant]
     Route: 030
     Dates: start: 20060404, end: 20060404

REACTIONS (5)
  - MYOCARDIAL INFARCTION [None]
  - PERICARDITIS [None]
  - SINUS TACHYCARDIA [None]
  - SUPRAVENTRICULAR EXTRASYSTOLES [None]
  - VENTRICULAR EXTRASYSTOLES [None]
